FAERS Safety Report 10539253 (Version 1)
Quarter: 2014Q4

REPORT INFORMATION
  Report Type: Spontaneous
  Country: MX (occurrence: MX)
  Receive Date: 20141023
  Receipt Date: 20141023
  Transmission Date: 20150529
  Serious: Yes (Other)
  Sender: FDA-Public Use
  Company Number: PHHY2014MX134318

PATIENT
  Age: 20 Year
  Sex: Male

DRUGS (1)
  1. AFINITOR [Suspect]
     Active Substance: EVEROLIMUS
     Indication: RENAL CELL CARCINOMA
     Route: 048

REACTIONS (4)
  - Mental retardation [Unknown]
  - Acne [Unknown]
  - Nervous system disorder [Unknown]
  - Epilepsy [Unknown]
